FAERS Safety Report 17375265 (Version 1)
Quarter: 2020Q1

REPORT INFORMATION
  Report Type: Spontaneous
  Country: BR (occurrence: BR)
  Receive Date: 20200205
  Receipt Date: 20200205
  Transmission Date: 20200409
  Serious: Yes (Other)
  Sender: FDA-Public Use
  Company Number: BR-PFIZER INC-2020051803

PATIENT
  Age: 56 Year
  Sex: Female

DRUGS (2)
  1. CYMBI [DULOXETINE HYDROCHLORIDE] [Concomitant]
     Active Substance: DULOXETINE HYDROCHLORIDE
     Dosage: 30MG 1 TABLET A DAY IN THE MORNING
  2. LYRICA [Suspect]
     Active Substance: PREGABALIN
     Indication: FIBROMYALGIA
     Dosage: 75MG, 1 CAPSULE AT DAY IN THE MORNING

REACTIONS (1)
  - Breast cancer [Unknown]
